FAERS Safety Report 8591317-8 (Version None)
Quarter: 2012Q3

REPORT INFORMATION
  Report Type: 
  Country: None (occurrence: None)
  Receive Date: 20120731
  Receipt Date: 20120716
  Transmission Date: 20120928
  Serious: Yes (Hospitalization)
  Sender: FDA-Public Use
  Company Number: TPA2012A05103

PATIENT
  Age: 65 Year
  Sex: Male

DRUGS (4)
  1. ADENURIC (FEBUXOSTAT) [Suspect]
     Indication: PRODUCT USED FOR UNKNOWN INDICATION
     Dosage: ORAL
     Route: 048
     Dates: end: 20120704
  2. LASIX [Concomitant]
  3. TRIATEC (CODEINE PHOSPHATE, CAFFEINE CITRATE, PARACETAMOL) [Concomitant]
  4. BISOPROLOL FUMARATE [Concomitant]

REACTIONS (6)
  - CREATININE RENAL CLEARANCE DECREASED [None]
  - VENTRICULAR EXTRASYSTOLES [None]
  - CARDIAC FAILURE [None]
  - PANCYTOPENIA [None]
  - SINUS BRADYCARDIA [None]
  - ATRIOVENTRICULAR BLOCK FIRST DEGREE [None]
